FAERS Safety Report 10165451 (Version 1)
Quarter: 2014Q2

REPORT INFORMATION
  Report Type: Spontaneous
  Country: US (occurrence: US)
  Receive Date: 20140510
  Receipt Date: 20140510
  Transmission Date: 20141212
  Serious: No
  Sender: FDA-Public Use
  Company Number: US-BRISTOL-MYERS SQUIBB COMPANY-20471769

PATIENT
  Age: 54 Year
  Sex: Male
  Weight: 103.85 kg

DRUGS (5)
  1. BYDUREON [Suspect]
     Indication: TYPE 2 DIABETES MELLITUS
     Route: 058
     Dates: start: 2014
  2. HUMALOG [Concomitant]
  3. LANTUS [Concomitant]
  4. ACTOS [Concomitant]
  5. METFORMIN [Concomitant]

REACTIONS (5)
  - Injection site nodule [Not Recovered/Not Resolved]
  - Injection site inflammation [Not Recovered/Not Resolved]
  - Injection site pruritus [Not Recovered/Not Resolved]
  - Pyrexia [Unknown]
  - Incorrect product storage [Unknown]
